FAERS Safety Report 4557689-6 (Version None)
Quarter: 2005Q1

REPORT INFORMATION
  Report Type: 
  Country: None (occurrence: None)
  Receive Date: 20050118
  Receipt Date: 20041220
  Transmission Date: 20050727
  Serious: Yes (Hospitalization)
  Sender: FDA-Public Use
  Company Number: PHFR2004GB04658

PATIENT

DRUGS (1)
  1. LIORESAL [Suspect]

REACTIONS (5)
  - COMA [None]
  - ESCHERICHIA INFECTION [None]
  - INCOHERENT [None]
  - PYREXIA [None]
  - THERAPY NON-RESPONDER [None]
